FAERS Safety Report 21617765 (Version 1)
Quarter: 2022Q4

REPORT INFORMATION
  Report Type: Report from Study
  Country: US (occurrence: US)
  Receive Date: 20221119
  Receipt Date: 20221119
  Transmission Date: 20230112
  Serious: No
  Sender: FDA-Public Use
  Company Number: US-ABBVIE-4206262

PATIENT
  Sex: Male

DRUGS (17)
  1. VENCLEXTA [Suspect]
     Active Substance: VENETOCLAX
     Indication: Chronic lymphocytic leukaemia
     Route: 048
  2. EpiPen 2-Pak Injection Solution Aut [Concomitant]
     Indication: Product used for unknown indication
  3. Azelastine HCl Nasal Solution 137 M [Concomitant]
     Indication: Product used for unknown indication
  4. Xarelto Oral Tablet 20 MG [Concomitant]
     Indication: Product used for unknown indication
  5. Paxil Oral Tablet 20 MG [Concomitant]
     Indication: Product used for unknown indication
  6. Norvasc Oral Tablet 10 MG [Concomitant]
     Indication: Product used for unknown indication
  7. Acyclovir Oral Tablet 400 MG [Concomitant]
     Indication: Product used for unknown indication
  8. Doxepin HCl Oral Capsule 50 MG [Concomitant]
     Indication: Product used for unknown indication
  9. Silodosin Oral Capsule 8 MG [Concomitant]
     Indication: Product used for unknown indication
  10. Clindamycin HCl Oral Capsule 300 MG [Concomitant]
     Indication: Product used for unknown indication
  11. Prochlorperazine Rectal Suppository [Concomitant]
     Indication: Product used for unknown indication
  12. oxycodone HCl Oral Tablet 10 MG [Concomitant]
     Indication: Product used for unknown indication
  13. Vascepa Oral Capsule 1 GM [Concomitant]
     Indication: Product used for unknown indication
  14. LORazepam Oral Tablet 1 MG [Concomitant]
     Indication: Product used for unknown indication
  15. Vasotec Oral Tablet 10 MG [Concomitant]
     Indication: Product used for unknown indication
  16. Prochlorperazine Maleate Oral Table [Concomitant]
     Indication: Product used for unknown indication
  17. Vitamin D3 Oral Capsule 25 MCG (100 [Concomitant]
     Indication: Product used for unknown indication

REACTIONS (3)
  - Fatigue [Not Recovered/Not Resolved]
  - Decreased appetite [Not Recovered/Not Resolved]
  - Nausea [Not Recovered/Not Resolved]
